FAERS Safety Report 20874230 (Version 1)
Quarter: 2022Q2

REPORT INFORMATION
  Report Type: Spontaneous
  Country: AT (occurrence: AT)
  Receive Date: 20220525
  Receipt Date: 20220525
  Transmission Date: 20220721
  Serious: Yes (Other)
  Sender: FDA-Public Use
  Company Number: AT-SERVIER-S22005159

PATIENT

DRUGS (4)
  1. IVOSIDENIB [Suspect]
     Active Substance: IVOSIDENIB
     Indication: Acute myeloid leukaemia refractory
     Dosage: 250 MG, BID
     Route: 048
     Dates: start: 20200507, end: 20200604
  2. IVOSIDENIB [Suspect]
     Active Substance: IVOSIDENIB
     Dosage: 250 MG, QD
     Route: 048
     Dates: start: 20200702, end: 20200716
  3. IVOSIDENIB [Suspect]
     Active Substance: IVOSIDENIB
     Dosage: 250 MG, BID
     Route: 048
     Dates: start: 20200717
  4. Azacitidin betapharm [Concomitant]
     Indication: Acute myeloid leukaemia refractory
     Dosage: EVERY 4 WEEKS, ON DAYS 1-7 OF A 28-DAY-CYCLE
     Route: 058
     Dates: start: 20200421, end: 20200525

REACTIONS (2)
  - Thrombocytopenia [Recovered/Resolved]
  - Neutropenia [Recovered/Resolved]

NARRATIVE: CASE EVENT DATE: 20200604
